FAERS Safety Report 9220084 (Version 1)
Quarter: 2013Q1

REPORT INFORMATION
  Report Type: Spontaneous
  Country: US (occurrence: US)
  Receive Date: 20120831
  Receipt Date: 20120831
  Transmission Date: 20140127
  Serious: No
  Sender: FDA-Public Use
  Company Number: 1000030806

PATIENT
  Sex: Male

DRUGS (1)
  1. DALIRESP [Suspect]
     Dates: start: 20120515, end: 20120520

REACTIONS (5)
  - Diarrhoea [None]
  - Insomnia [None]
  - Rash [None]
  - Inflammation [None]
  - Bone pain [None]
